FAERS Safety Report 15396097 (Version 1)
Quarter: 2018Q3

REPORT INFORMATION
  Report Type: Spontaneous
  Country: US (occurrence: US)
  Receive Date: 20180918
  Receipt Date: 20180918
  Transmission Date: 20181010
  Serious: No
  Sender: FDA-Public Use
  Company Number: US-LPDUSPRD-20181104

PATIENT
  Sex: Female

DRUGS (1)
  1. ACETYLCYSTEINE SOLUTION, USP (014?10) [Suspect]
     Active Substance: ACETYLCYSTEINE
     Dosage: UNKNOWN
     Route: 065

REACTIONS (1)
  - Nausea [Unknown]
